FAERS Safety Report 15848717 (Version 1)
Quarter: 2019Q1

REPORT INFORMATION
  Report Type: Spontaneous
  Country: CN (occurrence: CN)
  Receive Date: 20190121
  Receipt Date: 20190121
  Transmission Date: 20190417
  Serious: Yes (Other)
  Sender: FDA-Public Use
  Company Number: CN-MYLANLABS-2019M1003702

PATIENT
  Sex: Female

DRUGS (21)
  1. ETOPOSIDE. [Suspect]
     Active Substance: ETOPOSIDE
     Indication: GESTATIONAL TROPHOBLASTIC TUMOUR
     Dosage: AS PART OF THE FAEV REGIMEN
     Route: 065
  2. ETOPOSIDE. [Suspect]
     Active Substance: ETOPOSIDE
     Dosage: AS PART OF THE TP/TE REGIMEN
     Route: 065
  3. PACLITAXEL. [Suspect]
     Active Substance: PACLITAXEL
     Dosage: ON DAY 1 EVERY 14 DAYS AS PART OF GOP REGIMEN
     Route: 042
  4. FLUOROURACIL. [Suspect]
     Active Substance: FLUOROURACIL
     Dosage: FLUOROURACIL MONO-THERAPY
     Route: 065
  5. ETOPOSIDE. [Suspect]
     Active Substance: ETOPOSIDE
     Indication: GESTATIONAL TROPHOBLASTIC TUMOUR
     Dosage: ADMINISTERED ON DAY 1 AND DAY 2 EVERY 14 DAYS AS PART OF THE EMA-CO REGIMEN
     Route: 042
  6. VINCRISTINE [Suspect]
     Active Substance: VINCRISTINE
     Dosage: AS PART OF THE PVB REGIMEN
     Route: 065
  7. VINCRISTINE [Suspect]
     Active Substance: VINCRISTINE
     Dosage: AS PART OF THE FAEV REGIMEN
     Route: 065
  8. CISPLATIN. [Suspect]
     Active Substance: CISPLATIN
     Dosage: AS PART OF THE TP/TE REGIMEN
     Route: 065
  9. PACLITAXEL. [Suspect]
     Active Substance: PACLITAXEL
     Indication: GESTATIONAL TROPHOBLASTIC TUMOUR
     Dosage: AS PART OF THE TP/TE REGIMEN
     Route: 065
  10. GEMCITABINE [Suspect]
     Active Substance: GEMCITABINE\GEMCITABINE HYDROCHLORIDE
     Indication: GESTATIONAL TROPHOBLASTIC TUMOUR
     Dosage: ON DAY 1 EVERY 14 DAYS AS PART OF GOP REGIMEN
     Route: 042
  11. VINCRISTINE [Suspect]
     Active Substance: VINCRISTINE
     Indication: GESTATIONAL TROPHOBLASTIC TUMOUR
     Dosage: ADMINISTERED ON DAY 8 EVERY 14 DAYS, AS PART OF THE EMA-CO REGIMEN
     Route: 042
  12. FLUOROURACIL. [Suspect]
     Active Substance: FLUOROURACIL
     Indication: GESTATIONAL TROPHOBLASTIC TUMOUR
     Dosage: AS PART OF THE FA REGIMEN
     Route: 065
  13. DACTINOMYCIN [Suspect]
     Active Substance: DACTINOMYCIN
     Dosage: AS PART OF THE FAEV REGIMEN
     Route: 065
  14. CISPLATIN. [Suspect]
     Active Substance: CISPLATIN
     Indication: GESTATIONAL TROPHOBLASTIC TUMOUR
     Dosage: AS PART OF THE PVB REGIMEN
     Route: 065
  15. BLEOMYCIN [Suspect]
     Active Substance: BLEOMYCIN SULFATE
     Indication: GESTATIONAL TROPHOBLASTIC TUMOUR
     Dosage: AS PART OF THE PVB REGIMEN
     Route: 065
  16. DACTINOMYCIN [Suspect]
     Active Substance: DACTINOMYCIN
     Indication: GESTATIONAL TROPHOBLASTIC TUMOUR
     Dosage: ADMINISTERED ON DAY 1 AND DAY 2 EVERY 14 DAYS AS PART OF THE EMA-CO REGIMEN
     Route: 042
  17. FLOXURIDINE. [Suspect]
     Active Substance: FLOXURIDINE
     Indication: GESTATIONAL TROPHOBLASTIC TUMOUR
     Dosage: AS PART OF THE FAEV REGIMEN
     Route: 065
  18. DACTINOMYCIN [Suspect]
     Active Substance: DACTINOMYCIN
     Indication: GESTATIONAL TROPHOBLASTIC TUMOUR
     Dosage: AS PART OF THE FA REGIMEN
     Route: 065
  19. OXALIPLATIN. [Suspect]
     Active Substance: OXALIPLATIN
     Indication: GESTATIONAL TROPHOBLASTIC TUMOUR
     Dosage: ON DAY 1 EVERY 14 DAYS AS PART OF GOP REGIMEN
     Route: 042
  20. METHOTREXATE. [Suspect]
     Active Substance: METHOTREXATE
     Indication: GESTATIONAL TROPHOBLASTIC TUMOUR
     Dosage: ADMINISTERED ON DAY 1 EVERY 14 DAYS, AS PART OF THE EMA-CO REGIMEN
     Route: 042
  21. CYCLOPHOSPHAMIDE. [Suspect]
     Active Substance: CYCLOPHOSPHAMIDE
     Indication: GESTATIONAL TROPHOBLASTIC TUMOUR
     Dosage: ADMINISTERED ON DAY 8 EVERY 14 DAYS, AS PART OF THE EMA-CO REGIMEN
     Route: 042

REACTIONS (2)
  - Drug ineffective [Unknown]
  - Neutropenia [Unknown]
